FAERS Safety Report 9506042 (Version 1)
Quarter: 2013Q1

REPORT INFORMATION
  Report Type: Spontaneous
  Country: US (occurrence: None)
  Receive Date: 20130305
  Receipt Date: 20130305
  Transmission Date: 20140127
  Serious: No
  Sender: FDA-Public Use
  Company Number: 163-21880-12052433

PATIENT
  Age: 79 Year
  Sex: Male
  Weight: 89.4 kg

DRUGS (3)
  1. REVLIMID [Suspect]
     Indication: PLASMA CELL MYELOMA
     Dosage: 15MG, DAYS1-14 EVERY 28 DAYS, PO
     Route: 048
     Dates: start: 20101129
  2. THALOMID [Suspect]
     Indication: PLASMA CELL MYELOMA
     Dosage: 50MG, QOD DAYS 1-14 Q 28 DAYS
     Dates: start: 20110302
  3. PROCRIT [Concomitant]

REACTIONS (2)
  - Thrombosis [None]
  - Erythema [None]
